FAERS Safety Report 7885334-0 (Version None)
Quarter: 2011Q4

REPORT INFORMATION
  Report Type: 
  Country: None (occurrence: None)
  Receive Date: 20111102
  Receipt Date: 20111101
  Transmission Date: 20120403
  Serious: Yes (Death, Congenital Anomaly)
  Sender: FDA-Public Use
  Company Number: US-AMGEN-USASP2011046451

PATIENT
  Sex: Female

DRUGS (3)
  1. PRENATAL VITAMINS                  /01549301/ [Concomitant]
     Dosage: UNK
     Route: 064
  2. CLOMID [Concomitant]
     Dosage: UNK
     Route: 064
  3. ENBREL [Suspect]
     Dosage: 50 MG, QWK
     Route: 064

REACTIONS (2)
  - TALIPES [None]
  - INTRA-UTERINE DEATH [None]
